FAERS Safety Report 15335400 (Version 2)
Quarter: 2018Q4

REPORT INFORMATION
  Report Type: Spontaneous
  Country: US (occurrence: US)
  Receive Date: 20180830
  Receipt Date: 20181004
  Transmission Date: 20190204
  Serious: Yes (Death)
  Sender: FDA-Public Use
  Company Number: PHEH2018US035519

PATIENT
  Age: 80 Year
  Sex: Male

DRUGS (1)
  1. PROMACTA [Suspect]
     Active Substance: ELTROMBOPAG OLAMINE
     Indication: IMMUNE THROMBOCYTOPENIC PURPURA
     Dosage: 1 DF, QD
     Route: 048
     Dates: start: 20180724

REACTIONS (1)
  - Immune thrombocytopenic purpura [Fatal]

NARRATIVE: CASE EVENT DATE: 20180821
